FAERS Safety Report 22803004 (Version 3)
Quarter: 2024Q3

REPORT INFORMATION
  Report Type: Report from Study
  Country: US (occurrence: US)
  Receive Date: 20230809
  Receipt Date: 20240927
  Transmission Date: 20241017
  Serious: No
  Sender: MERCK
  Company Number: US-009507513-2307USA005893

PATIENT
  Sex: Male

DRUGS (3)
  1. BELSOMRA [Suspect]
     Active Substance: SUVOREXANT
     Indication: Insomnia
     Dosage: 20 MILLIGRAM, HS
     Route: 048
     Dates: start: 2023, end: 2023
  2. BELSOMRA [Suspect]
     Active Substance: SUVOREXANT
     Dosage: TWO 20 MG TABLETS BEFORE SLEEP
     Route: 048
     Dates: start: 20230711
  3. BELSOMRA [Suspect]
     Active Substance: SUVOREXANT
     Dosage: 20 MILLIGRAM, HS
     Route: 048
     Dates: start: 2023

REACTIONS (9)
  - Drug ineffective [Recovered/Resolved]
  - Insomnia [Recovered/Resolved]
  - Emotional disorder [Recovered/Resolved]
  - Loss of therapeutic response [Recovered/Resolved]
  - Dry mouth [Unknown]
  - Anxiety [Recovered/Resolved]
  - Somnolence [Recovered/Resolved]
  - Intentional overdose [Unknown]
  - Product dose omission issue [Unknown]

NARRATIVE: CASE EVENT DATE: 20230101
